FAERS Safety Report 10102282 (Version 2)
Quarter: 2014Q2

REPORT INFORMATION
  Report Type: Spontaneous
  Country: FR (occurrence: FR)
  Receive Date: 20140424
  Receipt Date: 20140424
  Transmission Date: 20141212
  Serious: Yes (Hospitalization, Other)
  Sender: FDA-Public Use
  Company Number: FR-ACTAVIS-2014-07087

PATIENT
  Age: 15 Year
  Sex: Female

DRUGS (4)
  1. PARACETAMOL (UNKNOWN) [Suspect]
     Indication: INTENTIONAL OVERDOSE
     Dosage: 8 G, UNKNOWN( 115 MG/KG)
     Route: 048
  2. IBUPROFEN (UNKNOWN) [Suspect]
     Indication: POISONING DELIBERATE
     Dosage: 2 G, UNKNOWN
     Route: 065
  3. NAPROXEN (UNKNOWN) [Suspect]
     Indication: INTENTIONAL OVERDOSE
     Dosage: 4.4 G, UNKNOWN
     Route: 065
  4. PSEUDOEPHEDRINE (UNKNOWN) [Suspect]
     Dosage: 300 MG, UNKNOWN
     Route: 065

REACTIONS (3)
  - Renal failure acute [Recovered/Resolved]
  - Poisoning deliberate [Recovered/Resolved]
  - Intentional overdose [Recovered/Resolved]
